APPROVED DRUG PRODUCT: HYDROCODONE BITARTRATE AND ACETAMINOPHEN
Active Ingredient: ACETAMINOPHEN; HYDROCODONE BITARTRATE
Strength: 325MG;5MG
Dosage Form/Route: TABLET;ORAL
Application: A207172 | Product #001
Applicant: LANNETT CO INC
Approved: Jun 22, 2017 | RLD: No | RS: No | Type: DISCN